FAERS Safety Report 13819611 (Version 1)
Quarter: 2017Q3

REPORT INFORMATION
  Report Type: Report from Study
  Country: US (occurrence: US)
  Receive Date: 20170731
  Receipt Date: 20170731
  Transmission Date: 20171127
  Serious: No
  Sender: FDA-Public Use
  Company Number: US-EXELIXIS-CABO-17008240

PATIENT
  Sex: Female

DRUGS (11)
  1. CALCIUM CITRATE [Concomitant]
     Active Substance: CALCIUM CITRATE
  2. SERTRALINE [Concomitant]
     Active Substance: SERTRALINE HYDROCHLORIDE
  3. CABOMETYX [Suspect]
     Active Substance: CABOZANTINIB S-MALATE
     Indication: RENAL CANCER
     Dosage: 60 MG, QD
     Route: 048
     Dates: start: 20170118
  4. LOSARTAN. [Concomitant]
     Active Substance: LOSARTAN
  5. FLOVENT [Concomitant]
     Active Substance: FLUTICASONE PROPIONATE
  6. MULTIVITAMINS [Concomitant]
     Active Substance: VITAMINS
  7. MAGNESIUM OXIDE. [Concomitant]
     Active Substance: MAGNESIUM OXIDE
  8. PROVENTIL [Concomitant]
     Active Substance: ALBUTEROL
  9. ZOFRAN [Concomitant]
     Active Substance: ONDANSETRON HYDROCHLORIDE
  10. FLONASE [Concomitant]
     Active Substance: FLUTICASONE PROPIONATE
  11. OMEPRAZOLE. [Concomitant]
     Active Substance: OMEPRAZOLE

REACTIONS (4)
  - Rhinorrhoea [Unknown]
  - Constipation [Unknown]
  - Blood pressure increased [Unknown]
  - Rash [Unknown]
